FAERS Safety Report 17975846 (Version 1)
Quarter: 2020Q3

REPORT INFORMATION
  Report Type: Spontaneous
  Country: CN (occurrence: CN)
  Receive Date: 20200702
  Receipt Date: 20200702
  Transmission Date: 20201103
  Serious: Yes (Other)
  Sender: FDA-Public Use
  Company Number: CN-009507513-2006CHN009584

PATIENT
  Age: 71 Year
  Sex: Female
  Weight: 58 kg

DRUGS (6)
  1. SODIUM CHLORIDE. [Concomitant]
     Active Substance: SODIUM CHLORIDE
     Indication: SEPSIS
     Dosage: 100 ML, QD
     Route: 041
     Dates: start: 20200615, end: 20200618
  2. INVANZ [Suspect]
     Active Substance: ERTAPENEM SODIUM
     Indication: MULTIPLE ORGAN DYSFUNCTION SYNDROME
  3. INVANZ [Suspect]
     Active Substance: ERTAPENEM SODIUM
     Indication: SEPSIS
     Dosage: 1G, QD
     Route: 041
     Dates: start: 20200615, end: 20200618
  4. SODIUM CHLORIDE. [Concomitant]
     Active Substance: SODIUM CHLORIDE
     Indication: MULTIPLE ORGAN DYSFUNCTION SYNDROME
  5. INVANZ [Suspect]
     Active Substance: ERTAPENEM SODIUM
     Indication: ANTI-INFECTIVE THERAPY
  6. SODIUM CHLORIDE. [Concomitant]
     Active Substance: SODIUM CHLORIDE
     Indication: ANTI-INFECTIVE THERAPY

REACTIONS (3)
  - Toxic encephalopathy [Recovered/Resolved]
  - Disorganised speech [Recovered/Resolved]
  - Delirium [Recovered/Resolved]

NARRATIVE: CASE EVENT DATE: 20200618
